FAERS Safety Report 10705262 (Version 2)
Quarter: 2015Q1

REPORT INFORMATION
  Report Type: Spontaneous
  Country: US (occurrence: US)
  Receive Date: 20150112
  Receipt Date: 20150121
  Transmission Date: 20150721
  Serious: Yes (Hospitalization, Other)
  Sender: FDA-Public Use
  Company Number: US-SHIRE-US201500103

PATIENT
  Sex: Male

DRUGS (5)
  1. FLAGYL [Suspect]
     Active Substance: METRONIDAZOLE\METRONIDAZOLE HYDROCHLORIDE
     Indication: CROHN^S DISEASE
     Dosage: UNK, UNKNOWN
     Route: 065
  2. HUMIRA [Suspect]
     Active Substance: ADALIMUMAB
     Dosage: 40 MG, 1X/WEEK
     Route: 065
     Dates: start: 201402
  3. PENTASA [Suspect]
     Active Substance: MESALAMINE
     Indication: CROHN^S DISEASE
     Dosage: UNK, UNKNOWN
     Route: 048
  4. HUMIRA [Suspect]
     Active Substance: ADALIMUMAB
     Indication: CROHN^S DISEASE
     Dosage: 40 MG, 1X/2WKS
     Route: 065
     Dates: start: 2011, end: 201211
  5. MERCAPTOPURINE. [Suspect]
     Active Substance: MERCAPTOPURINE
     Indication: CROHN^S DISEASE
     Dosage: UNK, UNKNOWN
     Route: 065

REACTIONS (11)
  - Arthralgia [Unknown]
  - Diarrhoea [Unknown]
  - Drug ineffective for unapproved indication [Recovered/Resolved]
  - Vomiting [Recovered/Resolved]
  - Haematochezia [Unknown]
  - Off label use [Recovered/Resolved]
  - Anxiety [Recovered/Resolved]
  - Carditis [Unknown]
  - Fear [Recovered/Resolved]
  - Uveitis [Unknown]
  - Mucous stools [Unknown]

NARRATIVE: CASE EVENT DATE: 2011
